FAERS Safety Report 22353306 (Version 1)
Quarter: 2023Q2

REPORT INFORMATION
  Report Type: Spontaneous
  Country: PR (occurrence: PR)
  Receive Date: 20230523
  Receipt Date: 20230523
  Transmission Date: 20230722
  Serious: Yes (Other)
  Sender: FDA-Public Use
  Company Number: PR-ADVANZ PHARMA-202305003545

PATIENT

DRUGS (1)
  1. PILOCARPINE [Suspect]
     Active Substance: PILOCARPINE
     Indication: Glaucoma
     Dosage: UNK (OPHTHALMIC SOLUTION OU)
     Route: 061

REACTIONS (1)
  - Vitreoretinal traction syndrome [Recovered/Resolved]
